FAERS Safety Report 6862251-6 (Version None)
Quarter: 2010Q2

REPORT INFORMATION
  Report Type: 
  Country: None (occurrence: None)
  Receive Date: 20100518
  Receipt Date: 20100311
  Transmission Date: 20101027
  Serious: Yes (Other)
  Sender: FDA-Public Use
  Company Number: AUR-APL-2010-00836

PATIENT
  Age: 62 Year
  Sex: Male

DRUGS (4)
  1. AMLODIPINE FILM-COATED TABLET [Suspect]
  2. LISINOPRIL [Suspect]
  3. LIPITOR [Suspect]
  4. NEXIUM [Suspect]

REACTIONS (4)
  - CHEST PAIN [None]
  - MUSCULAR WEAKNESS [None]
  - PAIN IN EXTREMITY [None]
  - TREMOR [None]
